FAERS Safety Report 11233687 (Version 2)
Quarter: 2015Q3

REPORT INFORMATION
  Report Type: Spontaneous
  Country: US (occurrence: US)
  Receive Date: 20150702
  Receipt Date: 20150818
  Transmission Date: 20151125
  Serious: Yes (Hospitalization, Other)
  Sender: FDA-Public Use
  Company Number: US-ROCHE-ITM201506IM017367

PATIENT
  Sex: Male
  Weight: 68.1 kg

DRUGS (2)
  1. ESBRIET [Suspect]
     Active Substance: PIRFENIDONE
     Indication: IDIOPATHIC PULMONARY FIBROSIS
     Dosage: 3 CAPSULES
     Route: 048
     Dates: start: 20150324
  2. LEVAQUIN [Concomitant]
     Active Substance: LEVOFLOXACIN

REACTIONS (6)
  - Bladder obstruction [Unknown]
  - Bladder cancer [Unknown]
  - Drug eruption [Unknown]
  - Nausea [Unknown]
  - Upper-airway cough syndrome [Unknown]
  - Pulmonary oedema [Unknown]
